FAERS Safety Report 6870176-5 (Version None)
Quarter: 2010Q3

REPORT INFORMATION
  Report Type: 
  Country: None (occurrence: None)
  Receive Date: 20100723
  Receipt Date: 20100721
  Transmission Date: 20110219
  Serious: Yes (Other)
  Sender: FDA-Public Use
  Company Number: US-ASTRAZENECA-2007UW12136

PATIENT
  Age: 16085 Day
  Sex: Male
  Weight: 117 kg

DRUGS (15)
  1. SEROQUEL [Suspect]
     Indication: BIPOLAR DISORDER
     Dosage: 300-500 MG
     Route: 048
     Dates: start: 20010321, end: 20050426
  2. SEROQUEL [Suspect]
     Route: 048
     Dates: start: 20010301
  3. ZYPREXA [Concomitant]
     Dates: start: 20000801, end: 20010301
  4. ALLI [Concomitant]
     Dates: start: 20060101
  5. ABILIFY [Concomitant]
     Dates: start: 20050101
  6. HALDOL [Concomitant]
     Dates: start: 19850101
  7. THORAZINE [Concomitant]
     Dates: start: 19850101
  8. LITHIUM [Concomitant]
     Dates: start: 20000616, end: 20050209
  9. LITHIUM [Concomitant]
     Dosage: 300 MG, TWO TABLETS IN THE MORNING AND THREE IN THE EVENING
     Dates: start: 20020101
  10. MELLARIL [Concomitant]
  11. LODINE [Concomitant]
     Indication: SPONDYLITIS
     Dates: start: 20020101
  12. RITALIN [Concomitant]
     Indication: NARCOLEPSY
     Dates: start: 20020101
  13. ATORVASTATIN [Concomitant]
     Dates: start: 20040101
  14. LORAZEPAM [Concomitant]
     Indication: ANXIETY
     Dosage: 0.5 MG THREE TIMES A DAY AS REQUIRED
     Route: 048
     Dates: start: 19970101
  15. LORAZEPAM [Concomitant]
     Indication: NERVOUSNESS
     Dosage: 0.5 MG THREE TIMES A DAY AS REQUIRED
     Route: 048
     Dates: start: 19970101

REACTIONS (9)
  - BLOOD CHOLESTEROL INCREASED [None]
  - BLOOD TRIGLYCERIDES INCREASED [None]
  - DIABETES MELLITUS [None]
  - GLUCOSE TOLERANCE IMPAIRED [None]
  - HYPERGLYCAEMIA [None]
  - NEUROPATHY PERIPHERAL [None]
  - OBESITY [None]
  - TYPE 2 DIABETES MELLITUS [None]
  - WEIGHT INCREASED [None]
